FAERS Safety Report 20422856 (Version 1)
Quarter: 2022Q1

REPORT INFORMATION
  Report Type: Spontaneous
  Country: US (occurrence: None)
  Receive Date: 20220203
  Receipt Date: 20220203
  Transmission Date: 20220423
  Serious: Yes (Other)
  Sender: FDA-Public Use
  Company Number: None

PATIENT

DRUGS (2)
  1. BAMLANIVIMAB [Suspect]
     Active Substance: BAMLANIVIMAB
  2. ETESEVIMAB [Suspect]
     Active Substance: ETESEVIMAB

REACTIONS (4)
  - Hypotension [None]
  - Chest pain [None]
  - Bradycardia [None]
  - Infusion related reaction [None]

NARRATIVE: CASE EVENT DATE: 20211103
